FAERS Safety Report 5907588-X (Version None)
Quarter: 2008Q4

REPORT INFORMATION
  Report Type: 
  Country: None (occurrence: None)
  Receive Date: 20081003
  Receipt Date: 20080929
  Transmission Date: 20090506
  Serious: Yes (Hospitalization)
  Sender: FDA-Public Use
  Company Number: FR-MERCK-0810FRA00005

PATIENT
  Age: 73 Year
  Sex: Female

DRUGS (9)
  1. INVANZ [Suspect]
     Indication: PYREXIA
     Route: 042
     Dates: start: 20080711, end: 20080719
  2. INVANZ [Suspect]
     Indication: ENDOCARDITIS
     Route: 042
     Dates: start: 20080711, end: 20080719
  3. LINEZOLID [Suspect]
     Indication: PYREXIA
     Route: 048
     Dates: start: 20080711, end: 20080719
  4. LINEZOLID [Suspect]
     Indication: ENDOCARDITIS
     Route: 048
     Dates: start: 20080711, end: 20080719
  5. VANCOMYCIN [Concomitant]
     Indication: ENDOCARDITIS
     Route: 042
     Dates: start: 20080630, end: 20080710
  6. LEVOTHYROXINE SODIUM [Concomitant]
     Indication: HYPOTHYROIDISM
     Route: 048
  7. ATORVASTATIN [Concomitant]
     Indication: HYPERCHOLESTEROLAEMIA
     Route: 048
  8. ZOLPIDEM TARTRATE [Concomitant]
     Indication: INSOMNIA
     Route: 048
  9. RIFAMPIN [Concomitant]
     Indication: LUNG INFECTION
     Route: 065
     Dates: start: 20080619, end: 20080709

REACTIONS (3)
  - OEDEMA [None]
  - PRURITUS GENERALISED [None]
  - RASH [None]
